FAERS Safety Report 8388407-1 (Version None)
Quarter: 2012Q2

REPORT INFORMATION
  Report Type: 
  Country: None (occurrence: None)
  Receive Date: 20120525
  Receipt Date: 20120515
  Transmission Date: 20120825
  Serious: No
  Sender: FDA-Public Use
  Company Number: US-ASTRAZENECA-2011SE18731

PATIENT
  Age: 57 Year
  Sex: Female

DRUGS (1)
  1. TOPROL-XL [Suspect]
     Route: 048

REACTIONS (7)
  - APHAGIA [None]
  - GENERAL PHYSICAL HEALTH DETERIORATION [None]
  - TOOTHACHE [None]
  - TOOTH LOSS [None]
  - TOOTH FRACTURE [None]
  - ORAL PAIN [None]
  - LOOSE TOOTH [None]
